FAERS Safety Report 4725949-1 (Version None)
Quarter: 2005Q3

REPORT INFORMATION
  Report Type: 
  Country: None (occurrence: None)
  Receive Date: 20050727
  Receipt Date: 20050722
  Transmission Date: 20060218
  Serious: Yes (Other)
  Sender: FDA-Public Use
  Company Number: US-GLAXOSMITHKLINE-A0567282A

PATIENT
  Age: 11 Year
  Sex: Female

DRUGS (2)
  1. WELLBUTRIN [Suspect]
     Indication: DEPRESSION
     Dosage: 150MG PER DAY
     Route: 048
     Dates: start: 20050404
  2. TRAZODONE HCL [Concomitant]

REACTIONS (3)
  - AMENORRHOEA [None]
  - DEPRESSION [None]
  - SUICIDE ATTEMPT [None]
